FAERS Safety Report 5266714-9 (Version None)
Quarter: 2007Q1

REPORT INFORMATION
  Report Type: 
  Country: None (occurrence: None)
  Receive Date: 20070312
  Receipt Date: 20070226
  Transmission Date: 20070707
  Serious: Yes (Disabling)
  Sender: FDA-Public Use
  Company Number: FR-1161432

PATIENT
  Age: 24 Year
  Sex: Male

DRUGS (1)
  1. VEXOL [Suspect]
     Dosage: EYE DROPS, SUSPENSION
     Route: 047
     Dates: start: 19990601

REACTIONS (5)
  - ASTIGMATISM [None]
  - BLINDNESS [None]
  - GRAFT COMPLICATION [None]
  - OCULAR HYPERTENSION [None]
  - SUTURE RUPTURE [None]
